FAERS Safety Report 5889285-2 (Version None)
Quarter: 2008Q3

REPORT INFORMATION
  Report Type: 
  Country: None (occurrence: None)
  Receive Date: 20080917
  Receipt Date: 20080902
  Transmission Date: 20090109
  Serious: Yes (Hospitalization, Other)
  Sender: FDA-Public Use
  Company Number: SPV1-2008-01888

PATIENT
  Age: 12 Year
  Sex: Male
  Weight: 47.6 kg

DRUGS (4)
  1. VYVANSE [Suspect]
     Indication: ATTENTION DEFICIT/HYPERACTIVITY DISORDER
     Dosage: 20 MG, 1X/DAY:QD, ORAL; 50 MG, 1X/DAY:QD, ORAL; 70 MG, 1X/DAY:QD, ORAL
     Route: 048
     Dates: start: 20070601, end: 20070701
  2. VYVANSE [Suspect]
     Indication: ATTENTION DEFICIT/HYPERACTIVITY DISORDER
     Dosage: 20 MG, 1X/DAY:QD, ORAL; 50 MG, 1X/DAY:QD, ORAL; 70 MG, 1X/DAY:QD, ORAL
     Route: 048
     Dates: start: 20070701, end: 20080501
  3. VYVANSE [Suspect]
     Indication: ATTENTION DEFICIT/HYPERACTIVITY DISORDER
     Dosage: 20 MG, 1X/DAY:QD, ORAL; 50 MG, 1X/DAY:QD, ORAL; 70 MG, 1X/DAY:QD, ORAL
     Route: 048
     Dates: start: 20080501, end: 20080801
  4. VYVANSE [Suspect]
     Indication: ATTENTION DEFICIT/HYPERACTIVITY DISORDER
     Dosage: 20 MG, 1X/DAY:QD, ORAL; 50 MG, 1X/DAY:QD, ORAL; 70 MG, 1X/DAY:QD, ORAL
     Route: 048
     Dates: start: 20080801, end: 20080812

REACTIONS (4)
  - CONDUCT DISORDER [None]
  - DRUG INEFFECTIVE [None]
  - INSOMNIA [None]
  - SUICIDAL IDEATION [None]
